FAERS Safety Report 11874389 (Version 1)
Quarter: 2015Q4

REPORT INFORMATION
  Report Type: Spontaneous
  Country: CA (occurrence: CA)
  Receive Date: 20151229
  Receipt Date: 20151229
  Transmission Date: 20160305
  Serious: Yes (Other)
  Sender: FDA-Public Use
  Company Number: CA-APOTEX-2015AP015465

PATIENT
  Age: 16 Year
  Sex: Female

DRUGS (4)
  1. APO-RISPERIDONE [Suspect]
     Active Substance: RISPERIDONE
     Indication: SCHIZOPHRENIA
     Dosage: 1 MG/DAY
     Route: 065
  2. ARIPIPRAZOLE. [Suspect]
     Active Substance: ARIPIPRAZOLE
     Dosage: 25MG/DAY
     Route: 065
  3. APO-RISPERIDONE [Suspect]
     Active Substance: RISPERIDONE
     Dosage: 2 MG/DAY
     Route: 065
  4. ARIPIPRAZOLE. [Suspect]
     Active Substance: ARIPIPRAZOLE
     Indication: SCHIZOPHRENIA
     Dosage: 10 MG/DAY
     Route: 065

REACTIONS (1)
  - Oculogyric crisis [Recovered/Resolved]
